FAERS Safety Report 8613907-6 (Version None)
Quarter: 2012Q3

REPORT INFORMATION
  Report Type: 
  Country: None (occurrence: None)
  Receive Date: 20120823
  Receipt Date: 20120810
  Transmission Date: 20120928
  Serious: Yes (Hospitalization, Other)
  Sender: FDA-Public Use
  Company Number: US-009507513-1107USA03602

PATIENT

DRUGS (3)
  1. FOSAMAX [Suspect]
     Indication: OSTEOPOROSIS
     Dosage: 70 MG, QW
     Route: 048
     Dates: start: 20070101, end: 20110101
  2. FOSAMAX [Suspect]
     Dosage: 70 MG, UNK
     Route: 048
     Dates: start: 20070510, end: 20071108
  3. FOSAMAX [Suspect]
     Dosage: 70 MG, UNK
     Route: 048
     Dates: start: 20080213, end: 20110103

REACTIONS (22)
  - ABSCESS OF EYELID [None]
  - BLOOD CHOLESTEROL INCREASED [None]
  - ADENOIDAL DISORDER [None]
  - TONSILLAR DISORDER [None]
  - URINARY TRACT INFECTION [None]
  - CYSTOCELE [None]
  - VERTIGO [None]
  - OSTEOARTHRITIS [None]
  - PLANTAR FASCIITIS [None]
  - FALL [None]
  - HYPERSENSITIVITY [None]
  - BALANCE DISORDER [None]
  - FEMUR FRACTURE [None]
  - MUSCULOSKELETAL PAIN [None]
  - CENTRAL OBESITY [None]
  - FURUNCLE [None]
  - BREAST DISORDER [None]
  - UTERINE DISORDER [None]
  - THYROID NEOPLASM [None]
  - BURSITIS [None]
  - EAR DISORDER [None]
  - ARTHRALGIA [None]
